FAERS Safety Report 5413777-3 (Version None)
Quarter: 2007Q3

REPORT INFORMATION
  Report Type: 
  Country: None (occurrence: None)
  Receive Date: 20070814
  Receipt Date: 20070803
  Transmission Date: 20080115
  Serious: Yes (Other)
  Sender: FDA-Public Use
  Company Number: US-ROCHE-510317

PATIENT
  Age: 39 Year
  Sex: Male

DRUGS (2)
  1. PEGASYS [Suspect]
     Dosage: PATIENT IN WEEK 21 OF TREATMENT.
     Route: 065
     Dates: start: 20070316
  2. RIBAVIRIN [Suspect]
     Dosage: PATIENT IN WEEK 21 OF TREATMENT.
     Route: 065
     Dates: start: 20070316

REACTIONS (1)
  - MASS [None]
